FAERS Safety Report 6346228-5 (Version None)
Quarter: 2009Q3

REPORT INFORMATION
  Report Type: 
  Country: None (occurrence: None)
  Receive Date: 20090909
  Receipt Date: 20090902
  Transmission Date: 20100115
  Serious: Yes (Hospitalization)
  Sender: FDA-Public Use
  Company Number: PHHY2009US37440

PATIENT
  Age: 35 Year
  Sex: Female

DRUGS (9)
  1. METOPROLOL [Suspect]
     Dosage: UNK
  2. EXENATIDE [Suspect]
  3. ROSIGLITAZONE [Concomitant]
  4. METFORMIN HCL [Concomitant]
  5. ATORVASTATIN [Concomitant]
  6. ASPIRIN [Concomitant]
  7. INSULIN [Concomitant]
  8. MONOPRIL [Concomitant]
  9. MAGNESIUM SULFATE [Concomitant]

REACTIONS (5)
  - AMNIOTIC CAVITY INFECTION [None]
  - CAESAREAN SECTION [None]
  - DRUG EXPOSURE DURING PREGNANCY [None]
  - PRE-ECLAMPSIA [None]
  - URINARY TRACT INFECTION [None]
